FAERS Safety Report 7471382-1 (Version None)
Quarter: 2011Q2

REPORT INFORMATION
  Report Type: 
  Country: None (occurrence: None)
  Receive Date: 20110510
  Receipt Date: 20110428
  Transmission Date: 20111010
  Serious: Yes (Death)
  Sender: FDA-Public Use
  Company Number: TH-ELI_LILLY_AND_COMPANY-TH201104007685

PATIENT
  Age: 53 Year
  Sex: Female

DRUGS (3)
  1. LAMICTAL [Concomitant]
     Dosage: UNK, QD
  2. RIVOTRIL [Concomitant]
     Dosage: UNK, QD
  3. ZYPREXA [Suspect]
     Dosage: 10 MG, TID

REACTIONS (2)
  - DEATH [None]
  - OVERDOSE [None]
